FAERS Safety Report 4811985-3 (Version None)
Quarter: 2005Q4

REPORT INFORMATION
  Report Type: 
  Country: None (occurrence: None)
  Receive Date: 20051028
  Receipt Date: 20041022
  Transmission Date: 20060501
  Serious: No
  Sender: FDA-Public Use
  Company Number: US-GLAXOSMITHKLINE-A0530925A

PATIENT
  Age: 58 Year
  Sex: Male

DRUGS (4)
  1. ADVAIR DISKUS 100/50 [Suspect]
     Indication: ASTHMA
     Dosage: 1PUFF TWICE PER DAY
     Route: 055
  2. BETA BLOCKER [Concomitant]
  3. NASONEX [Concomitant]
  4. LIPITOR [Concomitant]

REACTIONS (1)
  - DYSPNOEA EXACERBATED [None]
